FAERS Safety Report 23740761 (Version 3)
Quarter: 2024Q4

REPORT INFORMATION
  Report Type: Report from Study
  Country: US (occurrence: US)
  Receive Date: 20240415
  Receipt Date: 20241021
  Transmission Date: 20250115
  Serious: Yes (Hospitalization)
  Sender: ROCHE
  Company Number: US-ROCHE-3507114

PATIENT
  Age: 70 Year
  Sex: Female

DRUGS (12)
  1. OCREVUS [Suspect]
     Active Substance: OCRELIZUMAB
     Indication: Primary progressive multiple sclerosis
     Dosage: DATE OF TREATMENT: 15/DEC/2020, 19/JAN/2021. MOST RECENT INFUSION WAS ON 27/JUL/2023.
     Route: 042
     Dates: start: 20201215
  2. OCREVUS [Suspect]
     Active Substance: OCRELIZUMAB
     Dosage: 300 MG SINGLE USE VIAL
     Route: 042
     Dates: end: 20230113
  3. DIAZEPAM [Concomitant]
     Active Substance: DIAZEPAM
  4. LEVOTHYROXINE [Concomitant]
     Active Substance: LEVOTHYROXINE
  5. MYRBETRIQ [Concomitant]
     Active Substance: MIRABEGRON
  6. CELEBREX [Concomitant]
     Active Substance: CELECOXIB
  7. ALENDRONATE [Concomitant]
     Active Substance: ALENDRONATE SODIUM
  8. DEXILANT [Concomitant]
     Active Substance: DEXLANSOPRAZOLE
  9. BACLOFEN [Concomitant]
     Active Substance: BACLOFEN
  10. MAGNESIUM [Concomitant]
     Active Substance: MAGNESIUM
  11. VESICARE [Concomitant]
     Active Substance: SOLIFENACIN SUCCINATE
  12. CALCIUM CITRATE [Concomitant]
     Active Substance: CALCIUM CITRATE

REACTIONS (2)
  - Skin ulcer [Not Recovered/Not Resolved]
  - Wound [Unknown]
